FAERS Safety Report 20003300 (Version 3)
Quarter: 2022Q4

REPORT INFORMATION
  Report Type: Spontaneous
  Country: US (occurrence: US)
  Receive Date: 20211027
  Receipt Date: 20221101
  Transmission Date: 20230112
  Serious: Yes (Hospitalization, Other)
  Sender: FDA-Public Use
  Company Number: US-PFIZER INC-202101390265

PATIENT
  Age: 18 Year
  Sex: Male
  Weight: 80 kg

DRUGS (35)
  1. ZOSYN [Suspect]
     Active Substance: PIPERACILLIN SODIUM\TAZOBACTAM SODIUM
     Dosage: UNK
  2. XOSPATA [Suspect]
     Active Substance: GILTERITINIB
     Indication: Acute myeloid leukaemia
     Dosage: 120 MG, 1X/DAY
     Route: 048
     Dates: start: 20201219, end: 20201230
  3. XOSPATA [Suspect]
     Active Substance: GILTERITINIB
     Dosage: 80 MG, 1X/DAY
     Route: 048
  4. XOSPATA [Suspect]
     Active Substance: GILTERITINIB
     Dosage: 80 MG, 1X/DAY
     Route: 048
  5. XOSPATA [Suspect]
     Active Substance: GILTERITINIB
     Dosage: 120 MG, 1X/DAY
     Route: 048
     Dates: start: 20210222
  6. XOSPATA [Suspect]
     Active Substance: GILTERITINIB
     Dosage: 120 MG, 1X/DAY
     Route: 048
     Dates: start: 20210621
  7. TOPROL XL [Concomitant]
     Active Substance: METOPROLOL SUCCINATE
     Dosage: 25 MG
  8. ATIVAN [Concomitant]
     Active Substance: LORAZEPAM
     Dosage: 0.5 MG
     Dates: start: 20211021
  9. LIDOCAINE [Concomitant]
     Active Substance: LIDOCAINE
     Dosage: 0.5 %
  10. XYZAL [Concomitant]
     Active Substance: LEVOCETIRIZINE DIHYDROCHLORIDE
     Dosage: 5 MG
  11. FOLIC ACID [Concomitant]
     Active Substance: FOLIC ACID
     Dosage: 1 MG
  12. PRENACTA [Concomitant]
     Dosage: 75 MG
  13. CYMBALTA [Concomitant]
     Active Substance: DULOXETINE HYDROCHLORIDE
     Dosage: 30 MG
  14. BECLOMETHASONE [Concomitant]
     Active Substance: BECLOMETHASONE
     Dosage: 1 DF (1 MG/ML)
  15. ZOVIRAX [Concomitant]
     Active Substance: ACYCLOVIR
     Dosage: 800 MG
     Dates: start: 20201021
  16. HALDOL [HALOPERIDOL LACTATE] [Concomitant]
     Dosage: 0.5 MG
  17. SODIUM CHLORIDE [Concomitant]
     Active Substance: SODIUM CHLORIDE
  18. NEURONTIN [Concomitant]
     Active Substance: GABAPENTIN
     Dosage: 300 MG
  19. MAGNESIUM HYDROXIDE [Concomitant]
     Active Substance: MAGNESIUM HYDROXIDE
     Dosage: 300 MG
     Dates: start: 20211021
  20. LEVAQUIN [Concomitant]
     Active Substance: LEVOFLOXACIN
     Dosage: 500 MG
  21. LETERMOVIR [Concomitant]
     Active Substance: LETERMOVIR
     Dosage: 480 MG
     Dates: start: 20200921
  22. SENOKOT-S [Concomitant]
     Active Substance: DOCUSATE SODIUM\SENNOSIDES
     Dosage: UNK
  23. COMPAZINE [Concomitant]
     Active Substance: PROCHLORPERAZINE MALEATE
     Dosage: 40 MG
     Dates: start: 20201019
  24. NOXAFIL [Concomitant]
     Active Substance: POSACONAZOLE
     Dosage: 100 MG
     Dates: start: 20201020
  25. ZOFRAN [Concomitant]
     Active Substance: ONDANSETRON HYDROCHLORIDE
     Dosage: 8 MG
     Dates: start: 20201019
  26. MARINOL [Concomitant]
     Active Substance: DRONABINOL
     Dosage: 10 MG
     Dates: start: 20201019
  27. LASIX [Concomitant]
     Active Substance: FUROSEMIDE
     Dosage: 20 MG
     Dates: start: 20201020
  28. URSODIOL [Concomitant]
     Active Substance: URSODIOL
     Dosage: 500 MG
     Dates: start: 20201019, end: 20201228
  29. TACROLIMUS [Concomitant]
     Active Substance: TACROLIMUS
     Dosage: UNK
     Dates: start: 20201019
  30. ALDACTONE [Concomitant]
     Active Substance: SPIRONOLACTONE
     Dosage: 25 MG
     Dates: start: 20201020
  31. ENTRESTO [Concomitant]
     Active Substance: SACUBITRIL\VALSARTAN
     Dosage: UNK
     Dates: start: 20201019
  32. PRILOSEC [Concomitant]
     Active Substance: OMEPRAZOLE MAGNESIUM
     Dosage: 40 MG
  33. ZYPREXA [Concomitant]
     Active Substance: OLANZAPINE
     Dosage: 5 MG
     Dates: start: 20201019, end: 20210420
  34. BACTROBAN [Concomitant]
     Active Substance: MUPIROCIN\MUPIROCIN CALCIUM
     Dosage: UNK
  35. ROXICODONE [Concomitant]
     Active Substance: OXYCODONE HYDROCHLORIDE
     Dosage: UNK
     Dates: start: 20211020

REACTIONS (18)
  - Electrolyte imbalance [Unknown]
  - Appendicitis perforated [Unknown]
  - Cardiac dysfunction [Unknown]
  - Pulmonary function test decreased [Unknown]
  - Platelet count decreased [Unknown]
  - Osteonecrosis [Unknown]
  - White blood cell count decreased [Unknown]
  - Pyrexia [Unknown]
  - Drug eruption [Unknown]
  - Drug hypersensitivity [Unknown]
  - Blood sodium decreased [Unknown]
  - Procedural pain [Unknown]
  - Clostridium difficile infection [Unknown]
  - Abscess [Unknown]
  - Haematocrit decreased [Unknown]
  - Haemoglobin decreased [Unknown]
  - Red blood cell count decreased [Unknown]
  - Total lung capacity decreased [Unknown]

NARRATIVE: CASE EVENT DATE: 20201231
